FAERS Safety Report 9468968 (Version 1)
Quarter: 2013Q3

REPORT INFORMATION
  Report Type: Spontaneous
  Country: US (occurrence: US)
  Receive Date: 20130821
  Receipt Date: 20130821
  Transmission Date: 20140515
  Serious: Yes (Other)
  Sender: FDA-Public Use
  Company Number: CHPA2013US013086

PATIENT
  Age: 79 Year
  Sex: Male

DRUGS (3)
  1. MAALOX ANTACID/ANTIGAS MAX QDTABS ASST [Suspect]
     Indication: DYSPEPSIA
     Dosage: UNK, AT NIGHT
     Route: 048
  2. NIFEDIPINE [Concomitant]
     Indication: HYPERTENSION
     Dosage: UNK, UNK
  3. ACEBUTOLOL [Concomitant]
     Indication: HYPERTENSION
     Dosage: UNK, UNK

REACTIONS (3)
  - Barrett^s oesophagus [Not Recovered/Not Resolved]
  - Blood cholesterol increased [Unknown]
  - Gastrooesophageal reflux disease [Not Recovered/Not Resolved]
